FAERS Safety Report 4575025-6 (Version None)
Quarter: 2005Q1

REPORT INFORMATION
  Report Type: 
  Country: None (occurrence: None)
  Receive Date: 20050208
  Receipt Date: 20050131
  Transmission Date: 20050727
  Serious: Yes (Other)
  Sender: FDA-Public Use
  Company Number: US-AMGEN-US110780

PATIENT
  Sex: Male
  Weight: 84 kg

DRUGS (3)
  1. ENBREL [Suspect]
     Indication: PSORIASIS
     Route: 058
     Dates: start: 20031204
  2. LIPITOR [Suspect]
     Dates: start: 20040323, end: 20041206
  3. SORIATANE [Suspect]
     Dates: start: 20031016, end: 20041206

REACTIONS (1)
  - ALANINE AMINOTRANSFERASE INCREASED [None]
